FAERS Safety Report 8530291-7 (Version None)
Quarter: 2012Q2

REPORT INFORMATION
  Report Type: 
  Country: None (occurrence: None)
  Receive Date: 20120411
  Receipt Date: 20120312
  Transmission Date: 20120825
  Serious: No
  Sender: FDA-Public Use
  Company Number: PHEH2012US005874

PATIENT
  Age: 10 Year
  Sex: Male
  Weight: 71.2 kg

DRUGS (1)
  1. ILARIS [Suspect]
     Indication: MUCKLE-WELLS SYNDROME
     Dosage: 50 MG, EVERY 8 WEEKS, SUBCUTANEOUS
     Route: 058
     Dates: start: 20100110, end: 20110615

REACTIONS (3)
  - PAIN OF SKIN [None]
  - PRURITUS [None]
  - RASH [None]
